FAERS Safety Report 8200110-7 (Version None)
Quarter: 2012Q1

REPORT INFORMATION
  Report Type: 
  Country: None (occurrence: None)
  Receive Date: 20120306
  Receipt Date: 20120222
  Transmission Date: 20120608
  Serious: Yes (Life-Threatening, Hospitalization)
  Sender: FDA-Public Use
  Company Number: US-1190718

PATIENT
  Age: 60 Year
  Sex: Female
  Weight: 68.0396 kg

DRUGS (2)
  1. ANTIINFECTIVES, OPHTHALMIC [Concomitant]
  2. TOBRADEX ST [Suspect]
     Indication: CONJUNCTIVITIS
     Dosage: (1 GTT QID OPHTHALMIC)
     Route: 047
     Dates: start: 20110525, end: 20110525

REACTIONS (3)
  - ASTHENIA [None]
  - ANAPHYLACTIC REACTION [None]
  - HYPERSENSITIVITY [None]
